FAERS Safety Report 5272344-5 (Version None)
Quarter: 2007Q1

REPORT INFORMATION
  Report Type: 
  Country: None (occurrence: None)
  Receive Date: 20070320
  Receipt Date: 20070320
  Transmission Date: 20070707
  Serious: Yes (Death, Life-Threatening, Hospitalization)
  Sender: FDA-Public Use
  Company Number: None

PATIENT
  Sex: Male
  Weight: 83 kg

DRUGS (5)
  1. CARBIDOPA AND LEVODOPA [Suspect]
     Indication: INFLAMMATION
     Dosage: 2 TABLETS TID (PO)
     Route: 048
     Dates: start: 20050902
  2. CARBIDOPA AND LEVODOPA [Suspect]
     Indication: PARKINSON'S DISEASE
     Dosage: 2 TABLETS TID (PO)
     Route: 048
     Dates: start: 20050902
  3. OTC NSAIDS USE (UNSPECIFIED) [Suspect]
     Indication: PAIN
     Dosage: 3-4 PRN
  4. CIPROFLOXACIN [Concomitant]
  5. OMEPRAZOLE [Concomitant]

REACTIONS (6)
  - CHRONIC OBSTRUCTIVE PULMONARY DISEASE [None]
  - CONDITION AGGRAVATED [None]
  - GASTROINTESTINAL HAEMORRHAGE [None]
  - PNEUMONIA [None]
  - PULMONARY OEDEMA [None]
  - RESPIRATORY FAILURE [None]
